FAERS Safety Report 4766162-1 (Version None)
Quarter: 2005Q3

REPORT INFORMATION
  Report Type: 
  Country: None (occurrence: None)
  Receive Date: 20050912
  Receipt Date: 20041209
  Transmission Date: 20060218
  Serious: Yes (Hospitalization)
  Sender: FDA-Public Use
  Company Number: PHNU2004DE04127

PATIENT

DRUGS (5)
  1. LOCOL [Suspect]
     Indication: CORONARY ARTERY DISEASE
     Dosage: 80 MG, QD
     Dates: start: 20040928, end: 20041028
  2. SERTRALINE HCL [Suspect]
  3. PIRACETAM (NGX) [Suspect]
  4. GABAPENTIN [Suspect]
  5. TESTOSTERONE [Suspect]
     Dosage: 4DF/WEEK

REACTIONS (9)
  - ALANINE AMINOTRANSFERASE INCREASED [None]
  - ASPARTATE AMINOTRANSFERASE INCREASED [None]
  - BLOOD CREATINE PHOSPHOKINASE INCREASED [None]
  - BLOOD CREATINE PHOSPHOKINASE MB [None]
  - BLOOD CREATINE PHOSPHOKINASE MB INCREASED [None]
  - DYSPNOEA [None]
  - MUSCULAR WEAKNESS [None]
  - MYALGIA [None]
  - RHABDOMYOLYSIS [None]
